FAERS Safety Report 9858886 (Version 1)
Quarter: 2014Q1

REPORT INFORMATION
  Report Type: Spontaneous
  Country: US (occurrence: US)
  Receive Date: 20140131
  Receipt Date: 20140131
  Transmission Date: 20141002
  Serious: Yes (Hospitalization)
  Sender: FDA-Public Use
  Company Number: PHHY2014US008552

PATIENT
  Age: 51 Year
  Sex: Male

DRUGS (10)
  1. MYCOPHENOLATE MOFETIL [Suspect]
     Indication: HEART TRANSPLANT
     Dosage: 1000 MG, BID
  2. PREDNISONE [Concomitant]
     Indication: HEART TRANSPLANT
     Dosage: 20 MG, BID
  3. TACROLIMUS [Concomitant]
     Indication: HEART TRANSPLANT
     Dosage: 2 MG, BID
  4. ACICLOVIR [Concomitant]
     Indication: HEART TRANSPLANT
     Dosage: 450 MG, BID
  5. ITRACONAZOLE [Concomitant]
     Indication: HEART TRANSPLANT
     Dosage: 200 MG, TID
  6. COTRIMOXAZOLE [Concomitant]
     Indication: HEART TRANSPLANT
     Dosage: 1 DF, QW3
  7. HEPARIN [Concomitant]
     Dosage: 5000 U, BID
     Route: 058
  8. OMEPRAZOL [Concomitant]
     Dosage: 40 MG, UNK
  9. PRAVASTATIN [Concomitant]
     Dosage: 40 MG, UNK
  10. FUROSEMIDE [Concomitant]
     Dosage: 40 MG, BID

REACTIONS (9)
  - Pulmonary haemorrhage [Recovered/Resolved]
  - Pulmonary arterial wedge pressure increased [Recovered/Resolved]
  - Dyspnoea [Recovered/Resolved]
  - Cough [Recovered/Resolved]
  - Haemothorax [Recovered/Resolved]
  - Hypoxia [Recovered/Resolved]
  - Respiratory failure [Recovered/Resolved]
  - Lung infiltration [Recovered/Resolved]
  - Hyperdynamic left ventricle [Unknown]
